FAERS Safety Report 16863390 (Version 3)
Quarter: 2022Q1

REPORT INFORMATION
  Report Type: Spontaneous
  Country: US (occurrence: US)
  Receive Date: 20190927
  Receipt Date: 20220326
  Transmission Date: 20220423
  Serious: No
  Sender: FDA-Public Use
  Company Number: US-SA-2019SA267467

PATIENT
  Age: 57 Year
  Sex: Female

DRUGS (1)
  1. KEVZARA [Suspect]
     Active Substance: SARILUMAB
     Indication: Rheumatoid arthritis
     Dosage: 200 MG, QOW
     Route: 058
     Dates: start: 20190618

REACTIONS (8)
  - Nasal congestion [Unknown]
  - Pain of skin [Unknown]
  - Oropharyngeal pain [Unknown]
  - Dysuria [Unknown]
  - Myalgia [Unknown]
  - Muscle spasms [Unknown]
  - Tongue erythema [Unknown]
  - Blood cholesterol increased [Unknown]

NARRATIVE: CASE EVENT DATE: 20210901
